FAERS Safety Report 6310159-7 (Version None)
Quarter: 2009Q3

REPORT INFORMATION
  Report Type: 
  Country: None (occurrence: None)
  Receive Date: 20090814
  Receipt Date: 20090812
  Transmission Date: 20100115
  Serious: Yes (Other)
  Sender: FDA-Public Use
  Company Number: US-BRISTOL-MYERS SQUIBB COMPANY-14738355

PATIENT
  Age: 62 Year
  Sex: Female
  Weight: 77 kg

DRUGS (8)
  1. ABILIFY [Suspect]
     Indication: POST-TRAUMATIC STRESS DISORDER
     Dosage: 15MG DAILY FOR 4 MONTHS AND 30MG DAILY TILL 02/2009
     Dates: end: 20090201
  2. ABILIFY [Suspect]
     Indication: DEPRESSION
     Dosage: 15MG DAILY FOR 4 MONTHS AND 30MG DAILY TILL 02/2009
     Dates: end: 20090201
  3. LEVOTHYROXINE [Concomitant]
  4. LIPITOR [Concomitant]
  5. RANITIDINE [Concomitant]
  6. LEXAPRO [Concomitant]
  7. TOPAMAX [Concomitant]
  8. TRICOR [Concomitant]

REACTIONS (5)
  - FALL [None]
  - FOOT FRACTURE [None]
  - HEAD INJURY [None]
  - RIB FRACTURE [None]
  - THERMAL BURN [None]
